FAERS Safety Report 16076823 (Version 1)
Quarter: 2019Q2

REPORT INFORMATION
  Report Type: Spontaneous
  Country: US (occurrence: US)
  Receive Date: 20190314
  Receipt Date: 20190314
  Transmission Date: 20190711
  Serious: Yes (Hospitalization)
  Sender: FDA-Public Use
  Company Number: None

PATIENT
  Age: 45 Year
  Sex: Female
  Weight: 59.42 kg

DRUGS (9)
  1. PRADAXA [Concomitant]
     Active Substance: DABIGATRAN ETEXILATE MESYLATE
     Dates: start: 20181227
  2. HIZENTRA [Suspect]
     Active Substance: HUMAN IMMUNOGLOBULIN G
     Indication: IMMUNODEFICIENCY COMMON VARIABLE
     Dosage: OTHER FREQUENCY:ONCE EVERY 3 DAYS;?
     Route: 058
     Dates: start: 20190201, end: 20190228
  3. HIZENTRA [Suspect]
     Active Substance: HUMAN IMMUNOGLOBULIN G
     Indication: IMMUNODEFICIENCY COMMON VARIABLE
     Dosage: ?          OTHER FREQUENCY:ONCE EVERY 3 DAYS;?
     Route: 058
     Dates: start: 20190201, end: 20190228
  4. ZOFRAN 8MG [Concomitant]
     Dates: start: 20181220
  5. ACETAMINOPHEN 325-650MG [Concomitant]
     Dates: start: 20190201
  6. DIPHENHYDRAMINE 25-50MG [Concomitant]
     Dates: start: 20190201
  7. LASIX 80MG [Concomitant]
     Dates: start: 20181220
  8. REMODULIN 2.5MG [Concomitant]
     Dates: start: 20181220
  9. SOLU-MEDROL [Concomitant]
     Active Substance: METHYLPREDNISOLONE SODIUM SUCCINATE
     Dates: start: 20181220

REACTIONS (2)
  - Pulmonary embolism [None]
  - Thrombosis [None]

NARRATIVE: CASE EVENT DATE: 20190225
